FAERS Safety Report 5807897-9 (Version None)
Quarter: 2008Q3

REPORT INFORMATION
  Report Type: 
  Country: None (occurrence: None)
  Receive Date: 20080711
  Receipt Date: 20080630
  Transmission Date: 20090109
  Serious: Yes (Other)
  Sender: FDA-Public Use
  Company Number: US-PFIZER INC-2008026400

PATIENT
  Sex: Female
  Weight: 59.4 kg

DRUGS (26)
  1. LYRICA [Suspect]
     Indication: NEUROPATHY PERIPHERAL
     Route: 048
     Dates: start: 20080320, end: 20080321
  2. LYRICA [Suspect]
     Indication: FIBROMYALGIA
  3. ATENOLOL [Concomitant]
  4. LASIX [Concomitant]
  5. COZAAR [Concomitant]
     Route: 048
  6. SPIRONOLACTONE [Concomitant]
  7. COUMADIN [Concomitant]
  8. ZETIA [Concomitant]
  9. TRICOR [Concomitant]
  10. OXYCONTIN [Concomitant]
  11. ALL OTHER THERAPEUTIC PRODUCTS [Concomitant]
  12. RESTORIL [Concomitant]
  13. VERAPAMIL [Concomitant]
  14. ZAROXOLYN [Concomitant]
     Indication: WEIGHT INCREASED
  15. HYDROCODONE BITARTRATE + ACETAMINOPHEN [Concomitant]
     Dosage: TEXT:10MG./ 325MG.
  16. OXYCODONE HCL [Concomitant]
  17. TEMAZEPAM [Concomitant]
     Indication: INSOMNIA
     Route: 048
  18. TINACTIN [Concomitant]
  19. NEXIUM [Concomitant]
     Route: 048
  20. HYDRALAZINE HYDROCHLORIDE [Concomitant]
     Indication: HYPERTENSION
  21. ALEVE [Concomitant]
     Indication: PAIN
     Route: 048
  22. POTASSIUM CHLORIDE [Concomitant]
     Route: 048
  23. ACETYLSALICYLIC ACID SRT [Concomitant]
     Route: 048
  24. VITACAL [Concomitant]
     Route: 048
  25. MULTI-VITAMINS [Concomitant]
     Route: 048
  26. VERELAN PM [Concomitant]
     Route: 048

REACTIONS (25)
  - ANGIOEDEMA [None]
  - BREAST MASS [None]
  - BRONCHOSPASM [None]
  - CARDIAC FAILURE CONGESTIVE [None]
  - CERVICAL SPINAL STENOSIS [None]
  - DEPRESSION [None]
  - DIZZINESS [None]
  - DYSPNOEA [None]
  - FEELING ABNORMAL [None]
  - GAIT DISTURBANCE [None]
  - HYPERSENSITIVITY [None]
  - INSOMNIA [None]
  - LUNG INFECTION [None]
  - MALAISE [None]
  - MALIGNANT HYPERTENSION [None]
  - MENTAL IMPAIRMENT [None]
  - MUSCLE DISORDER [None]
  - NEUROPATHY PERIPHERAL [None]
  - NOCTURNAL DYSPNOEA [None]
  - PANIC ATTACK [None]
  - SKIN LESION [None]
  - SKIN NODULE [None]
  - STRESS URINARY INCONTINENCE [None]
  - SWELLING [None]
  - THROAT TIGHTNESS [None]
